FAERS Safety Report 12477140 (Version 1)
Quarter: 2016Q2

REPORT INFORMATION
  Report Type: Spontaneous
  Country: US (occurrence: US)
  Receive Date: 20160617
  Receipt Date: 20160617
  Transmission Date: 20160815
  Serious: Yes (Hospitalization, Other)
  Sender: FDA-Public Use
  Company Number: US-AMGEN-US142917

PATIENT
  Age: 22 Year
  Sex: Female

DRUGS (7)
  1. PREDNISONE. [Concomitant]
     Active Substance: PREDNISONE
     Dosage: 30 MG, QD
  2. HEPARIN [Concomitant]
     Active Substance: HEPARIN SODIUM
     Dosage: 5000 IU, BID
  3. ARANESP [Suspect]
     Active Substance: DARBEPOETIN ALFA
     Indication: ANAEMIA
     Dosage: 100 MUG, QWK
  4. INSULIN [Concomitant]
     Active Substance: INSULIN NOS
  5. FERROUS SULFATE. [Concomitant]
     Active Substance: FERROUS SULFATE
     Dosage: 325 MG, TID
  6. METHYLDOPA. [Concomitant]
     Active Substance: METHYLDOPA
     Dosage: 250 MG, QD
  7. ASPIRIN. [Concomitant]
     Active Substance: ASPIRIN
     Dosage: 81 MG, QD

REACTIONS (5)
  - Hyperkalaemia [Unknown]
  - Premature separation of placenta [Unknown]
  - Pulmonary alveolar haemorrhage [Unknown]
  - Azotaemia [Unknown]
  - Epistaxis [Unknown]
